FAERS Safety Report 7816598-7 (Version None)
Quarter: 2011Q4

REPORT INFORMATION
  Report Type: 
  Country: None (occurrence: None)
  Receive Date: 20111017
  Receipt Date: 20111006
  Transmission Date: 20120403
  Serious: Yes (Hospitalization, Other)
  Sender: FDA-Public Use
  Company Number: US-US-EMD SERONO, INC.-7005533

PATIENT
  Sex: Female
  Weight: 64 kg

DRUGS (5)
  1. PLAVIX [Suspect]
     Indication: CAROTID ARTERY OCCLUSION
     Route: 048
     Dates: end: 20100319
  2. ASPIRIN [Suspect]
     Indication: CAROTID ARTERY OCCLUSION
  3. TYLENOL-500 [Concomitant]
     Indication: PREMEDICATION
  4. REBIF [Suspect]
     Indication: MULTIPLE SCLEROSIS
     Route: 058
     Dates: start: 20050824
  5. AGGRENOX [Suspect]
     Indication: CAROTID ARTERY OCCLUSION

REACTIONS (3)
  - HEAD INJURY [None]
  - CAROTID ARTERY STENOSIS [None]
  - SUBDURAL HAEMATOMA [None]
